FAERS Safety Report 14707135 (Version 1)
Quarter: 2018Q2

REPORT INFORMATION
  Report Type: Spontaneous
  Country: FR (occurrence: FR)
  Receive Date: 20180403
  Receipt Date: 20180403
  Transmission Date: 20180711
  Serious: Yes (Other)
  Sender: FDA-Public Use
  Company Number: FR-BRISTOL-MYERS SQUIBB COMPANY-BMS-2018-028357

PATIENT
  Age: 30 Year
  Sex: Female

DRUGS (2)
  1. YERVOY [Suspect]
     Active Substance: IPILIMUMAB
     Indication: MALIGNANT MELANOMA
     Dosage: 190 MG, QCYCLE
     Route: 041
     Dates: start: 20170414, end: 20170621
  2. OPDIVO [Suspect]
     Active Substance: NIVOLUMAB
     Indication: MALIGNANT MELANOMA
     Dosage: 60 MG, QCYCLE
     Route: 041
     Dates: start: 20170414, end: 20170621

REACTIONS (1)
  - Vitiligo [Recovering/Resolving]

NARRATIVE: CASE EVENT DATE: 20170607
